FAERS Safety Report 13093683 (Version 1)
Quarter: 2017Q1

REPORT INFORMATION
  Report Type: Spontaneous
  Country: CH (occurrence: CH)
  Receive Date: 20170106
  Receipt Date: 20170106
  Transmission Date: 20170428
  Serious: Yes (Life-Threatening, Hospitalization)
  Sender: FDA-Public Use
  Company Number: CH-TEVA-725539ISR

PATIENT
  Age: 43 Year
  Sex: Male
  Weight: 115 kg

DRUGS (11)
  1. AMIODARON-MEPHA 200 [Suspect]
     Active Substance: AMIODARONE
     Dosage: 200 MILLIGRAM DAILY;
  2. TRITTICO 100 MG TABLETTEN [Suspect]
     Active Substance: TRAZODONE HYDROCHLORIDE
     Dosage: 100 MILLIGRAM DAILY;
     Route: 048
  3. ALDACTONE [Concomitant]
     Active Substance: SPIRONOLACTONE
     Dosage: 100 MILLIGRAM DAILY;
     Route: 048
  4. PANTOZOL [Concomitant]
     Active Substance: PANTOPRAZOLE SODIUM
     Dosage: 40 MILLIGRAM DAILY;
     Route: 048
  5. MARCOUMAR [Suspect]
     Active Substance: PHENPROCOUMON
     Dosage: REPORTED DOSE: 3 MG
     Route: 048
  6. TEMESTA [Concomitant]
     Active Substance: LORAZEPAM
     Dosage: 2.5 MILLIGRAM DAILY;
     Route: 048
  7. TORASEMID MEPHA [Concomitant]
     Dosage: 50 MILLIGRAM DAILY; 3-2-0-0
     Route: 048
  8. MAGNESIUM DIASPORAL [Suspect]
     Active Substance: MAGNESIUM
     Dosage: 300 MILLIGRAM DAILY;
  9. LYRICA [Concomitant]
     Active Substance: PREGABALIN
     Dosage: 100 MILLIGRAM DAILY; STRENGHT: 50 MG
     Route: 048
  10. PLAVIX [Suspect]
     Active Substance: CLOPIDOGREL BISULFATE
     Dosage: 75 MILLIGRAM DAILY;
  11. KCL HAUSMANN [Concomitant]
     Dosage: 120 MILLIMOL DAILY; STRENGHTS= 10 MMOL DOSE TAKEN: 4-4-4-0

REACTIONS (3)
  - Subarachnoid haemorrhage [Recovered/Resolved]
  - Headache [Recovered/Resolved]
  - Hypoaesthesia [Recovered/Resolved]

NARRATIVE: CASE EVENT DATE: 20160925
